FAERS Safety Report 5769498-0 (Version None)
Quarter: 2008Q2

REPORT INFORMATION
  Report Type: 
  Country: None (occurrence: None)
  Receive Date: 20080612
  Receipt Date: 20080324
  Transmission Date: 20081010
  Serious: No
  Sender: FDA-Public Use
  Company Number: US-ABBOTT-08P-163-0444941-00

PATIENT
  Sex: Female
  Weight: 45.4 kg

DRUGS (2)
  1. HUMIRA [Suspect]
     Indication: ANKYLOSING SPONDYLITIS
     Route: 058
     Dates: start: 20080211
  2. TERIPARATIDE [Concomitant]
     Indication: BONE DENSITY DECREASED
     Route: 050
     Dates: start: 20071003

REACTIONS (1)
  - PHARYNGOLARYNGEAL PAIN [None]
